FAERS Safety Report 25947749 (Version 2)
Quarter: 2025Q4

REPORT INFORMATION
  Report Type: Spontaneous
  Country: GB (occurrence: None)
  Receive Date: 20251022
  Receipt Date: 20251024
  Transmission Date: 20260117
  Serious: Yes (Death, Life-Threatening, Other)
  Sender: ORION
  Company Number: None

PATIENT
  Age: 59 Year
  Sex: Female
  Weight: 89 kg

DRUGS (3)
  1. METHOTREXATE [Suspect]
     Active Substance: METHOTREXATE
     Indication: Acute lymphocytic leukaemia
     Dosage: FLUSH
     Dates: start: 202506, end: 202506
  2. METHOTREXATE [Suspect]
     Active Substance: METHOTREXATE
     Dates: start: 202506, end: 2025
  3. METHOTREXATE [Suspect]
     Active Substance: METHOTREXATE
     Dosage: FLUSH
     Dates: start: 202506, end: 202506

REACTIONS (3)
  - Death [Fatal]
  - Pneumonia [Fatal]
  - Acute kidney injury [Fatal]

NARRATIVE: CASE EVENT DATE: 20250601
